FAERS Safety Report 12790199 (Version 1)
Quarter: 2016Q3

REPORT INFORMATION
  Report Type: Report from Study
  Country: US (occurrence: US)
  Receive Date: 20160928
  Receipt Date: 20160928
  Transmission Date: 20161109
  Serious: Yes (Life-Threatening, Hospitalization, Other)
  Sender: FDA-Public Use
  Company Number: US-MALLINCKRODT-T201604518

PATIENT
  Age: 57 Year
  Sex: Male
  Weight: 111 kg

DRUGS (20)
  1. LORAZEPAM. [Concomitant]
     Active Substance: LORAZEPAM
     Indication: INSOMNIA
     Dosage: UNK
     Dates: start: 2009
  2. NEXIUM [Concomitant]
     Active Substance: ESOMEPRAZOLE MAGNESIUM
     Indication: PROPHYLAXIS
     Dosage: UNK
     Dates: start: 20120711, end: 20130305
  3. SIMVASTATIN. [Concomitant]
     Active Substance: SIMVASTATIN
     Indication: HYPERLIPIDAEMIA
     Dosage: UNK
     Dates: start: 2007
  4. CINNAMON WITH CHROMIUM [Concomitant]
     Dosage: UNK
     Dates: start: 201202
  5. HYDROCODONE/ACETAMINOPHEN [Suspect]
     Active Substance: ACETAMINOPHEN\HYDROCODONE
     Dosage: 20-30 DF
     Route: 048
     Dates: start: 20140313, end: 20140313
  6. ST. JOHN^S WORT [Concomitant]
     Active Substance: ST. JOHN^S WORT
     Dosage: UNK
     Dates: start: 201202
  7. GINKO BILOBA [Concomitant]
     Active Substance: GINKGO
     Dosage: UNK
     Dates: start: 201202
  8. FLEXERIL [Suspect]
     Active Substance: CYCLOBENZAPRINE HYDROCHLORIDE
     Dosage: 40 DF
     Route: 048
  9. METFORMIN [Concomitant]
     Active Substance: METFORMIN HYDROCHLORIDE
     Indication: TYPE 2 DIABETES MELLITUS
     Dosage: UNK
     Dates: start: 2007
  10. ADVAIR HFA [Concomitant]
     Active Substance: FLUTICASONE PROPIONATE\SALMETEROL XINAFOATE
     Indication: ASTHMA EXERCISE INDUCED
     Dosage: UNK
     Dates: start: 2011
  11. LEVOTHYROXINE. [Concomitant]
     Active Substance: LEVOTHYROXINE
     Indication: HYPOTHYROIDISM
     Dosage: UNK
     Dates: start: 2008
  12. GARLIC. [Concomitant]
     Active Substance: GARLIC
     Dosage: UNK
     Dates: start: 201202
  13. MELATONIN [Concomitant]
     Active Substance: MELATONIN
     Dosage: UNK
     Dates: start: 201202
  14. HYDROCODONE/ACETAMINOPHEN [Suspect]
     Active Substance: ACETAMINOPHEN\HYDROCODONE
     Indication: OSTEOARTHRITIS
     Dosage: 7.5 MG, PRN
     Route: 048
     Dates: start: 20130206, end: 20140313
  15. FLEXERIL [Suspect]
     Active Substance: CYCLOBENZAPRINE HYDROCHLORIDE
     Indication: SPINAL OSTEOARTHRITIS
     Dosage: 10 MG, QD
     Route: 048
     Dates: start: 2007, end: 20140313
  16. LISINOPRIL. [Concomitant]
     Active Substance: LISINOPRIL
     Indication: HYPERTENSION
     Dosage: UNK
     Dates: start: 2007
  17. TYROSINE [Concomitant]
     Active Substance: TYROSINE
     Dosage: UNK
     Dates: start: 201202
  18. HYDROCODONE/ACETAMINOPHEN [Suspect]
     Active Substance: ACETAMINOPHEN\HYDROCODONE
     Dosage: UNK
     Route: 065
     Dates: start: 20130306
  19. SAW PALMETTO [Concomitant]
     Active Substance: SAW PALMETTO
     Dosage: UNK
     Dates: start: 201202
  20. 5-HTP [Concomitant]
     Active Substance: OXITRIPTAN
     Dosage: UNK
     Dates: start: 201202

REACTIONS (4)
  - Depression [Recovered/Resolved]
  - Chest pain [Unknown]
  - Suicide attempt [Recovered/Resolved]
  - Overdose [Recovered/Resolved]

NARRATIVE: CASE EVENT DATE: 2014
